FAERS Safety Report 6093749-9 (Version None)
Quarter: 2009Q1

REPORT INFORMATION
  Report Type: 
  Country: None (occurrence: None)
  Receive Date: 20090226
  Receipt Date: 20090218
  Transmission Date: 20090719
  Serious: Yes (Hospitalization)
  Sender: FDA-Public Use
  Company Number: US-BAYER-200910480BCC

PATIENT
  Sex: Female
  Weight: 49 kg

DRUGS (1)
  1. ALEVE [Suspect]
     Indication: ANALGESIA
     Dates: start: 20070101

REACTIONS (1)
  - HAEMATOCHEZIA [None]
